FAERS Safety Report 8306127-6 (Version None)
Quarter: 2012Q2

REPORT INFORMATION
  Report Type: 
  Country: None (occurrence: None)
  Receive Date: 20120423
  Receipt Date: 20120411
  Transmission Date: 20120825
  Serious: Yes (Other)
  Sender: FDA-Public Use
  Company Number: US-ROCHE-791885

PATIENT
  Sex: Female
  Weight: 47.67 kg

DRUGS (1)
  1. ACCUTANE [Suspect]
     Indication: ACNE
     Dates: start: 19920101, end: 19930101

REACTIONS (11)
  - COLITIS ULCERATIVE [None]
  - ENTEROVESICAL FISTULA [None]
  - DIVERTICULITIS [None]
  - RECTAL POLYP [None]
  - ABSCESS INTESTINAL [None]
  - HAEMORRHOIDS [None]
  - INFLAMMATORY BOWEL DISEASE [None]
  - CROHN'S DISEASE [None]
  - DEPRESSION [None]
  - DIVERTICULAR PERFORATION [None]
  - EMOTIONAL DISTRESS [None]
